FAERS Safety Report 7826904-5 (Version None)
Quarter: 2011Q4

REPORT INFORMATION
  Report Type: 
  Country: None (occurrence: None)
  Receive Date: 20111019
  Receipt Date: 20111019
  Transmission Date: 20120403
  Serious: Yes (Disabling)
  Sender: FDA-Public Use
  Company Number: None

PATIENT
  Age: 66 Year
  Sex: Female
  Weight: 57.6068 kg

DRUGS (2)
  1. LATANOPROST [Suspect]
     Indication: GLAUCOMA
     Dosage: ONE DROP BOTH EYES IN THE EVENING
     Dates: start: 20110501
  2. LATANOPROST [Suspect]
     Indication: GLAUCOMA
     Dosage: ONE DROP BOTH EYES IN THE EVENING
     Dates: start: 20110601

REACTIONS (3)
  - PRODUCT SUBSTITUTION ISSUE [None]
  - IRIS DISORDER [None]
  - VISUAL IMPAIRMENT [None]
